FAERS Safety Report 25033821 (Version 1)
Quarter: 2025Q1

REPORT INFORMATION
  Report Type: Spontaneous
  Country: NL (occurrence: NL)
  Receive Date: 20250303
  Receipt Date: 20250303
  Transmission Date: 20250408
  Serious: Yes (Hospitalization)
  Sender: BOEHRINGER INGELHEIM
  Company Number: NL-BoehringerIngelheim-2025-BI-011467

PATIENT
  Age: 68 Year
  Sex: Female

DRUGS (2)
  1. JARDIANCE [Suspect]
     Active Substance: EMPAGLIFLOZIN
     Indication: Product used for unknown indication
  2. JARDIANCE [Suspect]
     Active Substance: EMPAGLIFLOZIN

REACTIONS (5)
  - Joint swelling [Unknown]
  - Blood potassium increased [Unknown]
  - Blood magnesium decreased [Unknown]
  - Urine odour abnormal [Not Recovered/Not Resolved]
  - Urinary tract infection [Recovered/Resolved]
